FAERS Safety Report 5052852-2 (Version None)
Quarter: 2006Q3

REPORT INFORMATION
  Report Type: 
  Country: None (occurrence: None)
  Receive Date: 20060712
  Receipt Date: 20060705
  Transmission Date: 20061208
  Serious: Yes (Disabling)
  Sender: FDA-Public Use
  Company Number: 200614411BWH

PATIENT
  Age: 61 Year
  Sex: Female

DRUGS (3)
  1. TRASYLOL [Suspect]
     Dosage: SEE IMAGE
     Route: 042
     Dates: start: 20060622
  2. TRASYLOL [Suspect]
     Dosage: SEE IMAGE
     Route: 042
     Dates: start: 20060622
  3. VANCOMYCIN [Suspect]
     Indication: ANTIBIOTIC PROPHYLAXIS
     Dosage: 1 G, INTRAVENOUS
     Route: 042
     Dates: start: 20060622

REACTIONS (5)
  - EJECTION FRACTION DECREASED [None]
  - HYPOACUSIS [None]
  - OTOTOXICITY [None]
  - POST PROCEDURAL COMPLICATION [None]
  - PROCEDURAL HYPERTENSION [None]
